FAERS Safety Report 16979570 (Version 2)
Quarter: 2019Q4

REPORT INFORMATION
  Report Type: Spontaneous
  Country: US (occurrence: US)
  Receive Date: 20191031
  Receipt Date: 20191112
  Transmission Date: 20200122
  Serious: Yes (Other)
  Sender: FDA-Public Use
  Company Number: US-SAGENT PHARMACEUTICALS-2019SAG002164

PATIENT

DRUGS (6)
  1. LEUCOVORIN CALCIUM. [Suspect]
     Active Substance: LEUCOVORIN CALCIUM
     Indication: INTRADUCTAL PAPILLARY MUCINOUS NEOPLASM
  2. OXALIPLATIN. [Concomitant]
     Active Substance: OXALIPLATIN
     Indication: INTRADUCTAL PAPILLARY MUCINOUS NEOPLASM
  3. IRINOTECAN [Concomitant]
     Active Substance: IRINOTECAN
     Indication: INTRADUCTAL PAPILLARY MUCINOUS NEOPLASM
  4. GEMCITABINE. [Suspect]
     Active Substance: GEMCITABINE
     Indication: INTRADUCTAL PAPILLARY MUCINOUS NEOPLASM
     Dosage: 800 MG/M2
  5. FLUOROURACIL. [Concomitant]
     Active Substance: FLUOROURACIL
     Indication: INTRADUCTAL PAPILLARY MUCINOUS NEOPLASM
  6. PACLITAXEL. [Concomitant]
     Active Substance: PACLITAXEL
     Indication: INTRADUCTAL PAPILLARY MUCINOUS NEOPLASM
     Dosage: 100 MG/M2, UNK

REACTIONS (1)
  - Pulmonary toxicity [Unknown]
